FAERS Safety Report 18660891 (Version 1)
Quarter: 2020Q4

REPORT INFORMATION
  Report Type: Spontaneous
  Country: US (occurrence: US)
  Receive Date: 20201224
  Receipt Date: 20201224
  Transmission Date: 20210114
  Serious: Yes (Hospitalization)
  Sender: FDA-Public Use
  Company Number: None

PATIENT
  Age: 79 Year
  Sex: Female
  Weight: 49.5 kg

DRUGS (9)
  1. ALLOPURINOL 300MG [Concomitant]
     Active Substance: ALLOPURINOL
  2. MAGNESIUM GLUCONATE 500MG [Concomitant]
  3. VITAMIN C 500MG [Concomitant]
  4. PRESERVISION/LUTEIN [Concomitant]
  5. TRAZODONE [Concomitant]
     Active Substance: TRAZODONE HYDROCHLORIDE
  6. TURMERIC [Concomitant]
     Active Substance: HERBALS\TURMERIC
  7. IMATINIB MESYLATE. [Suspect]
     Active Substance: IMATINIB MESYLATE
     Indication: CHRONIC MYELOID LEUKAEMIA
     Route: 048
     Dates: start: 20200806
  8. VITAMIN D 5000 UNITS [Concomitant]
  9. COENZYME Q10 200MG [Concomitant]

REACTIONS (1)
  - Cardiac failure congestive [None]

NARRATIVE: CASE EVENT DATE: 20201224
